FAERS Safety Report 4554472-2 (Version None)
Quarter: 2004Q4

REPORT INFORMATION
  Report Type: 
  Country: None (occurrence: None)
  Receive Date: 20041222
  Receipt Date: 20040921
  Transmission Date: 20050328
  Serious: Yes (Other)
  Sender: FDA-Public Use
  Company Number: 2004069434

PATIENT
  Age: 48 Year
  Sex: Male
  Weight: 113.3993 kg

DRUGS (12)
  1. CARDURA [Suspect]
     Indication: URINARY RETENTION
     Dosage: 8 MG (4 MG, 2 IN 1 D), ORAL
     Route: 048
     Dates: start: 19970101
  2. MIRTAZAPINE [Suspect]
     Indication: DEPRESSION
  3. AMITRIPTYLINE HYDROCHLORIDE [Concomitant]
  4. CARBAMAZEPINE [Concomitant]
  5. THIORIDAZINE HCL [Concomitant]
  6. CLONAZEPAM [Concomitant]
  7. METHADONE HCL [Concomitant]
  8. VALDECOXIB [Concomitant]
  9. TAMSULOSIN (TAMSULOSIN) [Concomitant]
  10. ENALAPRIL (ENALAPRIL) [Concomitant]
  11. TRIHEXYPHENIDYL HCL [Concomitant]
  12. ROSUVASTATIN (ROSUVASTATIN) [Concomitant]

REACTIONS (5)
  - ANXIETY [None]
  - DEPRESSION [None]
  - DYSPNOEA [None]
  - FATIGUE [None]
  - SLEEP DISORDER [None]
